FAERS Safety Report 10718090 (Version 1)
Quarter: 2015Q1

REPORT INFORMATION
  Report Type: Spontaneous
  Country: US (occurrence: US)
  Receive Date: 20150117
  Receipt Date: 20150117
  Transmission Date: 20150721
  Serious: Yes (Other)
  Sender: FDA-Public Use
  Company Number: US-BRISTOL-MYERS SQUIBB COMPANY-BMS-2015-000243

PATIENT
  Sex: Female
  Weight: 68.27 kg

DRUGS (3)
  1. PAXIL [Suspect]
     Active Substance: PAROXETINE HYDROCHLORIDE
     Indication: PRODUCT USED FOR UNKNOWN INDICATION
     Route: 065
  2. ABILIFY [Suspect]
     Active Substance: ARIPIPRAZOLE
     Indication: ANXIETY
     Dosage: UNK
     Route: 048
     Dates: start: 2005, end: 2005
  3. ABILIFY [Suspect]
     Active Substance: ARIPIPRAZOLE
     Indication: DEPRESSION

REACTIONS (4)
  - Confusional state [Unknown]
  - Eye pain [Unknown]
  - Dyskinesia [Unknown]
  - Off label use [Unknown]

NARRATIVE: CASE EVENT DATE: 2005
